FAERS Safety Report 4688282-2 (Version None)
Quarter: 2005Q2

REPORT INFORMATION
  Report Type: 
  Country: None (occurrence: None)
  Receive Date: 20050610
  Receipt Date: 20050309
  Transmission Date: 20051028
  Serious: Yes (Hospitalization, Other)
  Sender: FDA-Public Use
  Company Number: US-MERCK-0503USA01777

PATIENT
  Age: 54 Year
  Sex: Male
  Weight: 91 kg

DRUGS (9)
  1. VIOXX [Suspect]
     Indication: OSTEOARTHRITIS
     Route: 048
     Dates: start: 20021211, end: 20031123
  2. CALAN [Concomitant]
     Route: 065
     Dates: start: 20000101, end: 20010101
  3. LOPID [Concomitant]
     Indication: BLOOD CHOLESTEROL INCREASED
     Route: 065
     Dates: start: 20010101, end: 20020101
  4. ASPIRIN [Concomitant]
     Route: 065
     Dates: start: 20000101
  5. VENTILAN (ALBUTEROL) [Concomitant]
     Route: 065
  6. CELEBREX [Suspect]
     Indication: ARTHRALGIA
     Route: 065
     Dates: start: 20020101, end: 20020101
  7. CELEBREX [Suspect]
     Indication: MYALGIA
     Route: 065
     Dates: start: 20020101, end: 20020101
  8. BEXTRA [Concomitant]
     Indication: ARTHRALGIA
     Route: 065
     Dates: start: 20030101, end: 20030101
  9. BEXTRA [Concomitant]
     Indication: MYALGIA
     Route: 065
     Dates: start: 20030101, end: 20030101

REACTIONS (8)
  - ANXIETY [None]
  - CHRONIC OBSTRUCTIVE PULMONARY DISEASE [None]
  - CONVULSION [None]
  - GASTROOESOPHAGEAL REFLUX DISEASE [None]
  - HAEMATOCHEZIA [None]
  - MYOCARDIAL INFARCTION [None]
  - RHEUMATOID ARTHRITIS [None]
  - SLEEP APNOEA SYNDROME [None]
